FAERS Safety Report 6316290-4 (Version None)
Quarter: 2009Q3

REPORT INFORMATION
  Report Type: 
  Country: None (occurrence: None)
  Receive Date: 20090819
  Receipt Date: 20090819
  Transmission Date: 20100115
  Serious: Yes (Hospitalization)
  Sender: FDA-Public Use
  Company Number: None

PATIENT
  Age: 25 Year
  Sex: Female
  Weight: 59 kg

DRUGS (1)
  1. YAZ [Suspect]
     Indication: CONTRACEPTION
     Dosage: 1 TABLET DAILY PO
     Route: 048
     Dates: start: 20080201, end: 20090811

REACTIONS (2)
  - CEREBRAL VENOUS THROMBOSIS [None]
  - CEREBROVASCULAR ACCIDENT [None]
